FAERS Safety Report 8049508-0 (Version None)
Quarter: 2012Q1

REPORT INFORMATION
  Report Type: 
  Country: None (occurrence: None)
  Receive Date: 20120117
  Receipt Date: 20120112
  Transmission Date: 20120608
  Serious: Yes (Death, Other)
  Sender: FDA-Public Use
  Company Number: GB-ABBOTT-12P-167-0893217-00

PATIENT
  Sex: Female
  Weight: 93 kg

DRUGS (2)
  1. HUMIRA [Suspect]
     Indication: PSORIATIC ARTHROPATHY
     Route: 058
     Dates: start: 20050915, end: 20061218
  2. METHOTREXATE [Concomitant]
     Indication: PRODUCT USED FOR UNKNOWN INDICATION

REACTIONS (7)
  - LOWER RESPIRATORY TRACT INFECTION [None]
  - INTESTINAL OBSTRUCTION [None]
  - COLON ADENOMA [None]
  - COLONIC POLYP [None]
  - MULTI-ORGAN FAILURE [None]
  - CARDIAC ARREST [None]
  - COLON CANCER METASTATIC [None]
